FAERS Safety Report 9253711 (Version 1)
Quarter: 2013Q2

REPORT INFORMATION
  Report Type: Spontaneous
  Country: IE (occurrence: IE)
  Receive Date: 20130425
  Receipt Date: 20130425
  Transmission Date: 20140414
  Serious: Yes (Other)
  Sender: FDA-Public Use
  Company Number: IE-009507513-1304IRL014341

PATIENT
  Age: 33 Year
  Sex: Female
  Weight: 57 kg

DRUGS (2)
  1. SINGULAIR [Suspect]
     Indication: ASTHMA
     Dosage: 10 MG, HS
     Route: 048
     Dates: start: 20121001
  2. MICROLITE [Concomitant]
     Dosage: UNK, QD
     Dates: start: 20100401, end: 20130408

REACTIONS (1)
  - Oral herpes [Not Recovered/Not Resolved]
